FAERS Safety Report 10213388 (Version 4)
Quarter: 2018Q2

REPORT INFORMATION
  Report Type: Report from Study
  Country: BR (occurrence: BR)
  Receive Date: 20140603
  Receipt Date: 20180417
  Transmission Date: 20180711
  Serious: Yes (Hospitalization, Disabling, Other)
  Sender: FDA-Public Use
  Company Number: BR-ROCHE-1402558

PATIENT
  Sex: Female
  Weight: 57 kg

DRUGS (7)
  1. PRESS PLUS [Concomitant]
  2. CLOPIDOGREL [Concomitant]
     Active Substance: CLOPIDOGREL BISULFATE
  3. ACTEMRA [Suspect]
     Active Substance: TOCILIZUMAB
     Indication: RHEUMATOID ARTHRITIS
     Dosage: THE MOST RECENT INFUSION WAS ON 09/APR/2014 AND PREVIOUS INFUSIONS WAS GIVEN ON 12/MAR/2014, 01/MAR/
     Route: 042
     Dates: start: 20140212
  4. ATENOLOL. [Concomitant]
     Active Substance: ATENOLOL
  5. CEBRALAT [Concomitant]
     Active Substance: CILOSTAZOL
  6. ASPIRIN. [Concomitant]
     Active Substance: ASPIRIN
  7. ARAVA [Concomitant]
     Active Substance: LEFLUNOMIDE

REACTIONS (8)
  - Hypertension [Unknown]
  - Venous occlusion [Unknown]
  - Cardiac disorder [Unknown]
  - Thrombosis [Unknown]
  - Pain [Unknown]
  - Weight decreased [Recovering/Resolving]
  - Arterial disorder [Not Recovered/Not Resolved]
  - Ill-defined disorder [Unknown]
